FAERS Safety Report 10916075 (Version 1)
Quarter: 2015Q1

REPORT INFORMATION
  Report Type: Spontaneous
  Country: CA (occurrence: CA)
  Receive Date: 20150316
  Receipt Date: 20150316
  Transmission Date: 20150721
  Serious: Yes (Hospitalization)
  Sender: FDA-Public Use
  Company Number: CA-PFIZER INC-2015053775

PATIENT
  Age: 55 Year
  Sex: Female

DRUGS (17)
  1. ATORVASTATIN [Concomitant]
     Active Substance: ATORVASTATIN
     Indication: BLOOD CHOLESTEROL ABNORMAL
     Dosage: 40 MG, 1X/DAY
     Dates: start: 20141006
  2. SYNTHROID [Concomitant]
     Active Substance: LEVOTHYROXINE SODIUM
     Indication: THYROID DISORDER
     Dosage: 0.075 MG, 1X/DAY
     Dates: start: 20141006
  3. NAPROXEN. [Concomitant]
     Active Substance: NAPROXEN
     Indication: PAIN
  4. ZOFRAN [Concomitant]
     Active Substance: ONDANSETRON HYDROCHLORIDE
     Dosage: 8 MG EVERY 6 HOURS IF NEEDED
     Dates: start: 20140923
  5. TRIMEBUTINE [Concomitant]
     Active Substance: TRIMEBUTINE
     Dosage: 200 MG, 3X/DAY 30 MINUTES BEFORE MEALS
     Dates: start: 20140407
  6. IMITREX DF [Concomitant]
     Indication: MIGRAINE
     Dosage: 100 MG, AS NEEDED
     Dates: start: 20141103
  7. PREVACID [Concomitant]
     Active Substance: LANSOPRAZOLE
     Indication: GASTROOESOPHAGEAL REFLUX DISEASE
  8. LYRICA [Suspect]
     Active Substance: PREGABALIN
     Indication: PAIN
  9. PREVACID [Concomitant]
     Active Substance: LANSOPRAZOLE
     Indication: ULCER
     Dosage: 30 MG, 2X/DAY (MORNING AND NIGHT BEFORE MEALS)
     Dates: start: 20140114
  10. ATASOL 8 [Concomitant]
     Indication: PAIN
     Dosage: 1 TO 2 TABLETS EVERY 4 TO 6 HOURS AS NEEDED
     Dates: start: 20150211
  11. NAPROXEN. [Concomitant]
     Active Substance: NAPROXEN
     Indication: INFLAMMATION
     Dosage: 500 MG TWICE DAILY AT BREAKFAST AND DINNER IF NEEDED
     Dates: start: 20141017
  12. FUCIDIN H [Concomitant]
     Dosage: THIN LAYER TO BE APPLIED ONTO TOES ONCE DAILY
     Dates: start: 20141216
  13. VITAMIN B12 [Concomitant]
     Active Substance: CYANOCOBALAMIN
     Dosage: 1200 ?G, 1X/DAY
     Dates: start: 20141110
  14. APPLE CIDER VINEGAR [Concomitant]
     Active Substance: APPLE CIDER VINEGAR
     Dosage: 500 MG, 3X/DAY
  15. LYRICA [Suspect]
     Active Substance: PREGABALIN
     Indication: CALCINOSIS
     Dosage: 75 MG, 2X/DAY
     Dates: start: 20130813, end: 201412
  16. DOMPERIDONE [Concomitant]
     Active Substance: DOMPERIDONE
     Indication: ULCER
     Dosage: 10 MG, 3X/DAY 30 MINUTES BEFORE MEALS
     Dates: start: 20140407
  17. HYDROXYZINE [Concomitant]
     Active Substance: HYDROXYZINE\HYDROXYZINE HYDROCHLORIDE
     Indication: HYPERSENSITIVITY
     Dosage: 50 MG, 2X/DAY
     Dates: start: 20141017

REACTIONS (18)
  - Vulvovaginal pruritus [Not Recovered/Not Resolved]
  - Snoring [Unknown]
  - Acne [Not Recovered/Not Resolved]
  - Dyspepsia [Unknown]
  - Swelling face [Not Recovered/Not Resolved]
  - Abdominal pain upper [Not Recovered/Not Resolved]
  - Paraesthesia [Not Recovered/Not Resolved]
  - Dyspnoea [Unknown]
  - Weight decreased [Not Recovered/Not Resolved]
  - Diarrhoea [Not Recovered/Not Resolved]
  - Drug intolerance [Unknown]
  - Nausea [Not Recovered/Not Resolved]
  - Peripheral swelling [Not Recovered/Not Resolved]
  - Plantar fasciitis [Unknown]
  - Hypoaesthesia [Not Recovered/Not Resolved]
  - Exostosis [Unknown]
  - Drug ineffective for unapproved indication [Not Recovered/Not Resolved]
  - Asthenia [Unknown]

NARRATIVE: CASE EVENT DATE: 201311
